FAERS Safety Report 4369536-6 (Version None)
Quarter: 2004Q2

REPORT INFORMATION
  Report Type: 
  Country: None (occurrence: None)
  Receive Date: 20040525
  Receipt Date: 20040510
  Transmission Date: 20050107
  Serious: Yes (Hospitalization)
  Sender: FDA-Public Use
  Company Number: 197761

PATIENT
  Age: 72 Year
  Sex: Female
  Weight: 78.0187 kg

DRUGS (3)
  1. AVONEX [Suspect]
     Indication: MULTIPLE SCLEROSIS
     Dosage: 30 MCG QW IM
     Route: 030
     Dates: start: 19960101, end: 20031101
  2. AVONEX [Suspect]
     Indication: MULTIPLE SCLEROSIS
     Dosage: 30 MCG QW IM
     Route: 030
     Dates: start: 20031101
  3. MULTI-VITAMIN [Concomitant]

REACTIONS (9)
  - ANKLE FRACTURE [None]
  - ASTHENIA [None]
  - CONDITION AGGRAVATED [None]
  - FALL [None]
  - INFLUENZA LIKE ILLNESS [None]
  - LOWER LIMB FRACTURE [None]
  - MULTIPLE SCLEROSIS [None]
  - POLLAKIURIA [None]
  - PRURITUS [None]
